FAERS Safety Report 11115845 (Version 1)
Quarter: 2015Q2

REPORT INFORMATION
  Report Type: Spontaneous
  Country: US (occurrence: None)
  Receive Date: 20150514
  Receipt Date: 20150514
  Transmission Date: 20150821
  Serious: Yes (Death, Hospitalization)
  Sender: FDA-Public Use
  Company Number: None

PATIENT
  Age: 54 Year
  Sex: Female
  Weight: 74.3 kg

DRUGS (2)
  1. CYTARABINE. [Suspect]
     Active Substance: CYTARABINE
     Dates: start: 20150427
  2. IDARUBICIN [Suspect]
     Active Substance: IDARUBICIN
     Dates: start: 20150426

REACTIONS (4)
  - Febrile neutropenia [None]
  - Haemorrhage [None]
  - Subdural haematoma [None]
  - Brain herniation [None]

NARRATIVE: CASE EVENT DATE: 20150503
